FAERS Safety Report 25001426 (Version 1)
Quarter: 2025Q1

REPORT INFORMATION
  Report Type: Spontaneous
  Country: US (occurrence: US)
  Receive Date: 20250223
  Receipt Date: 20250223
  Transmission Date: 20250409
  Serious: Yes (Hospitalization, Other)
  Sender: ADVANZ PHARMA
  Company Number: US-MLMSERVICE-20250204-PI390062-00270-1

PATIENT

DRUGS (6)
  1. PREDNISOLONE [Suspect]
     Active Substance: PREDNISOLONE
     Indication: Crohn^s disease
     Dates: start: 202307, end: 202403
  2. VEDOLIZUMAB [Suspect]
     Active Substance: VEDOLIZUMAB
     Indication: Crohn^s disease
     Dates: end: 202309
  3. UPADACITINIB [Suspect]
     Active Substance: UPADACITINIB
     Indication: Crohn^s disease
     Dates: start: 202309, end: 2023
  4. UPADACITINIB [Suspect]
     Active Substance: UPADACITINIB
     Dates: start: 2023
  5. UPADACITINIB [Suspect]
     Active Substance: UPADACITINIB
     Dates: end: 2024
  6. RECOMBINANT ZOSTER VACCINE [Concomitant]
     Indication: Herpes zoster immunisation
     Dates: start: 2023

REACTIONS (5)
  - Herpes zoster disseminated [Recovering/Resolving]
  - Diarrhoea haemorrhagic [Unknown]
  - Disease recurrence [Unknown]
  - Faecal calprotectin increased [Unknown]
  - Abdominal pain [Unknown]

NARRATIVE: CASE EVENT DATE: 20240101
